FAERS Safety Report 18427020 (Version 1)
Quarter: 2020Q4

REPORT INFORMATION
  Report Type: Spontaneous
  Country: US (occurrence: US)
  Receive Date: 20201026
  Receipt Date: 20201026
  Transmission Date: 20210114
  Serious: No
  Sender: FDA-Public Use
  Company Number: US-JNJFOC-A-NJ2020-208074

PATIENT
  Age: 61 Year
  Sex: Female
  Weight: 54.93 kg

DRUGS (6)
  1. OPSUMIT [Suspect]
     Active Substance: MACITENTAN
     Indication: PULMONARY ARTERIAL HYPERTENSION
     Dosage: 10 MG, QD
     Route: 048
     Dates: start: 20200723
  2. SILDENAFIL. [Concomitant]
     Active Substance: SILDENAFIL
     Route: 048
  3. OXYGEN. [Concomitant]
     Active Substance: OXYGEN
  4. REVATIO [Concomitant]
     Active Substance: SILDENAFIL CITRATE
  5. TORSEMIDE. [Concomitant]
     Active Substance: TORSEMIDE
  6. CILOSTAZOL. [Concomitant]
     Active Substance: CILOSTAZOL

REACTIONS (11)
  - Malaise [Unknown]
  - Pruritus [Recovered/Resolved]
  - Asthenia [Unknown]
  - Dizziness [Unknown]
  - Product dose omission issue [Unknown]
  - Dehydration [Unknown]
  - Decreased appetite [Unknown]
  - Headache [Not Recovered/Not Resolved]
  - Dyspnoea [Unknown]
  - Joint swelling [Unknown]
  - Hypotension [Unknown]

NARRATIVE: CASE EVENT DATE: 20200730
